FAERS Safety Report 6339558-4 (Version None)
Quarter: 2009Q3

REPORT INFORMATION
  Report Type: 
  Country: None (occurrence: None)
  Receive Date: 20090903
  Receipt Date: 20090901
  Transmission Date: 20100115
  Serious: Yes (Life-Threatening, Hospitalization)
  Sender: FDA-Public Use
  Company Number: JP-BAYER-200912394BYL

PATIENT
  Age: 88 Year
  Sex: Male
  Weight: 56 kg

DRUGS (16)
  1. NEXAVAR [Suspect]
     Indication: RENAL CELL CARCINOMA STAGE IV
     Dosage: TOTAL DAILY DOSE: 800 MG  UNIT DOSE: 200 MG
     Route: 048
     Dates: start: 20090424, end: 20090427
  2. NEXAVAR [Suspect]
     Dosage: UNIT DOSE: 200 MG
     Route: 048
     Dates: start: 20090501, end: 20090707
  3. NEXAVAR [Suspect]
     Dosage: UNIT DOSE: 200 MG
     Route: 048
     Dates: start: 20090805
  4. ZYLORIC [Concomitant]
     Route: 048
     Dates: start: 20090413
  5. AMLODIPINE [Concomitant]
     Route: 048
     Dates: start: 20090413
  6. ARTIST [Concomitant]
     Route: 048
     Dates: start: 20090413
  7. LASIX [Concomitant]
     Route: 048
     Dates: start: 20090413
  8. TAGAMET [Concomitant]
     Route: 048
     Dates: start: 20090413
  9. BUP-4 [Concomitant]
     Route: 048
     Dates: start: 20090413
  10. ASPIRIN [Concomitant]
     Dosage: UNIT DOSE: 100 MG
     Route: 048
     Dates: start: 20090413
  11. NEUROVITAN [Concomitant]
     Route: 048
     Dates: start: 20090413
  12. JUVELA [Concomitant]
     Route: 048
     Dates: start: 20090413
  13. PURSENNID [Concomitant]
     Route: 048
     Dates: start: 20090413
  14. MYSLEE [Concomitant]
     Route: 048
     Dates: start: 20090504
  15. MOBIC [Concomitant]
     Route: 048
     Dates: start: 20090609
  16. LENDORMIN [Concomitant]
     Route: 048
     Dates: start: 20090708

REACTIONS (6)
  - CARDIAC FAILURE CONGESTIVE [None]
  - CHEST DISCOMFORT [None]
  - CONJUNCTIVITIS [None]
  - HEPATIC FUNCTION ABNORMAL [None]
  - HYPERTENSION [None]
  - THROMBOCYTOPENIA [None]
